FAERS Safety Report 10082046 (Version 3)
Quarter: 2014Q2

REPORT INFORMATION
  Report Type: Report from Study
  Country: KR (occurrence: KR)
  Receive Date: 20140416
  Receipt Date: 20140627
  Transmission Date: 20141212
  Serious: Yes (Hospitalization)
  Sender: FDA-Public Use
  Company Number: KR-SA-2014SA042094

PATIENT
  Age: 63 Year
  Sex: Male
  Weight: 68 kg

DRUGS (2)
  1. LANTUS [Suspect]
     Indication: DIABETES MELLITUS
     Dosage: DOSE:36 UNIT(S)
     Route: 058
  2. APIDRA [Suspect]
     Indication: DIABETES MELLITUS
     Dosage: DOSE: 8-8-6 UNITS
     Route: 058

REACTIONS (2)
  - Toe amputation [Unknown]
  - Diabetes mellitus inadequate control [Not Recovered/Not Resolved]
